FAERS Safety Report 16236084 (Version 2)
Quarter: 2020Q4

REPORT INFORMATION
  Report Type: Other
  Country: CA (occurrence: CA)
  Receive Date: 20190425
  Receipt Date: 20201126
  Transmission Date: 20210113
  Serious: Yes (Hospitalization)
  Sender: FDA-Public Use
  Company Number: CA-APOTEX-2019AP012238

PATIENT
  Sex: Female

DRUGS (10)
  1. AVASTIN                            /00848101/ [Suspect]
     Active Substance: SIMVASTATIN
     Indication: OVARIAN CANCER
     Dosage: 863 MG, Q.3W
     Route: 042
  2. CANNABIS SATIVA [Concomitant]
     Active Substance: CANNABIS SATIVA FLOWERING TOP
     Indication: PRODUCT USED FOR UNKNOWN INDICATION
     Dosage: UNK
     Route: 065
  3. DIPHENHYDRAMINE. [Concomitant]
     Active Substance: DIPHENHYDRAMINE
     Indication: PRODUCT USED FOR UNKNOWN INDICATION
     Dosage: 50 MG, UNK
     Route: 048
  4. MONTELUKAST SODIUM. [Concomitant]
     Active Substance: MONTELUKAST SODIUM
     Indication: PRODUCT USED FOR UNKNOWN INDICATION
     Route: 065
  5. MARIJUANA [Concomitant]
     Active Substance: CANNABIS SATIVA SUBSP. INDICA TOP
     Indication: PRODUCT USED FOR UNKNOWN INDICATION
     Route: 065
  6. GEMCITABINE. [Suspect]
     Active Substance: GEMCITABINE
     Indication: OVARIAN CANCER
     Route: 065
  7. SIMVASTATIN. [Suspect]
     Active Substance: SIMVASTATIN
     Indication: OVARIAN CANCER
     Dosage: 863 MILLIGRAM, Q.3W
     Route: 042
  8. TYLENOL [Concomitant]
     Active Substance: ACETAMINOPHEN
     Indication: PRODUCT USED FOR UNKNOWN INDICATION
     Dosage: 650 MG, UNK
     Route: 048
  9. SIMVASTATIN. [Suspect]
     Active Substance: SIMVASTATIN
     Indication: OVARIAN CANCER
     Dosage: UNK
     Route: 065
  10. ACETAMINOPHEN. [Concomitant]
     Active Substance: ACETAMINOPHEN
     Indication: PRODUCT USED FOR UNKNOWN INDICATION
     Dosage: 650 MILLIGRAM
     Route: 048

REACTIONS (9)
  - Arthralgia [Recovering/Resolving]
  - Dry eye [Recovering/Resolving]
  - Photophobia [Recovering/Resolving]
  - Intra-abdominal fluid collection [Recovering/Resolving]
  - Upper respiratory tract infection [Recovering/Resolving]
  - Blood pressure increased [Recovering/Resolving]
  - Epistaxis [Recovering/Resolving]
  - Malaise [Recovering/Resolving]
  - Eye pain [Recovering/Resolving]
